FAERS Safety Report 21203417 (Version 2)
Quarter: 2022Q3

REPORT INFORMATION
  Report Type: Spontaneous
  Country: JP (occurrence: JP)
  Receive Date: 20220811
  Receipt Date: 20220819
  Transmission Date: 20221027
  Serious: Yes (Other)
  Sender: FDA-Public Use
  Company Number: JP-ARBOR PHARMACEUTICALS, LLC-JP-2022ARB001742

PATIENT
  Sex: Female

DRUGS (4)
  1. GABAPENTIN ENACARBIL [Suspect]
     Active Substance: GABAPENTIN ENACARBIL
     Indication: Hypoaesthesia
     Dosage: 2 DF, UNKNOWN FREQ.
     Route: 048
  2. GABAPENTIN ENACARBIL [Suspect]
     Active Substance: GABAPENTIN ENACARBIL
     Dosage: 1 DF, UNKNOWN FREQ.
     Route: 048
     Dates: start: 2021
  3. GABAPENTIN ENACARBIL [Suspect]
     Active Substance: GABAPENTIN ENACARBIL
     Dosage: 1 TABLET OR 2 TABLETS, UNKNOWN FREQ.
     Route: 048
  4. LOXOPROFEN SODIUM [Concomitant]
     Active Substance: LOXOPROFEN SODIUM
     Indication: Arthralgia
     Dosage: UNK
     Route: 048

REACTIONS (20)
  - Bedridden [Unknown]
  - Hypoaesthesia [Unknown]
  - Limb discomfort [Not Recovered/Not Resolved]
  - Arthralgia [Not Recovered/Not Resolved]
  - Middle insomnia [Unknown]
  - Malaise [Unknown]
  - Decreased appetite [Unknown]
  - Physical deconditioning [Unknown]
  - Abdominal discomfort [Unknown]
  - Muscular weakness [Unknown]
  - Hot flush [Unknown]
  - Arthropathy [Not Recovered/Not Resolved]
  - Withdrawal syndrome [Unknown]
  - Ear discomfort [Unknown]
  - Tremor [Unknown]
  - Somnolence [Unknown]
  - Headache [Unknown]
  - Insomnia [Unknown]
  - Feeling abnormal [Unknown]
  - Dry mouth [Unknown]

NARRATIVE: CASE EVENT DATE: 20210101
